FAERS Safety Report 5448884-2 (Version None)
Quarter: 2007Q3

REPORT INFORMATION
  Report Type: 
  Country: None (occurrence: None)
  Receive Date: 20070911
  Receipt Date: 20070813
  Transmission Date: 20080115
  Serious: No
  Sender: FDA-Public Use
  Company Number: US-BRISTOL-MYERS SQUIBB COMPANY-13876487

PATIENT
  Sex: Female

DRUGS (1)
  1. EMSAM [Suspect]
     Dates: start: 20070501

REACTIONS (5)
  - AGITATION [None]
  - DISCOMFORT [None]
  - INITIAL INSOMNIA [None]
  - NIGHTMARE [None]
  - PRURITUS [None]
